FAERS Safety Report 23898902 (Version 1)
Quarter: 2024Q2

REPORT INFORMATION
  Report Type: Report from Study
  Country: SE (occurrence: SE)
  Receive Date: 20240525
  Receipt Date: 20240525
  Transmission Date: 20240715
  Serious: Yes (Death, Hospitalization)
  Sender: FDA-Public Use
  Company Number: SE-ABBVIE-5774217

PATIENT
  Age: 85 Year
  Sex: Female

DRUGS (2)
  1. CARBIDOPA\LEVODOPA [Suspect]
     Active Substance: CARBIDOPA\LEVODOPA
     Indication: Parkinson^s disease
     Dosage: THERAPY DURATION: REMAINED AT 16H
     Route: 050
     Dates: start: 20140224
  2. CARBIDOPA\LEVODOPA [Suspect]
     Active Substance: CARBIDOPA\LEVODOPA

REACTIONS (3)
  - Death [Fatal]
  - Hip fracture [Unknown]
  - Fall [Unknown]

NARRATIVE: CASE EVENT DATE: 20240516
